FAERS Safety Report 11319657 (Version 1)
Quarter: 2015Q3

REPORT INFORMATION
  Report Type: Spontaneous
  Country: US (occurrence: None)
  Receive Date: 20150728
  Receipt Date: 20150728
  Transmission Date: 20151125
  Serious: Yes (Hospitalization)
  Sender: FDA-Public Use
  Company Number: None

PATIENT
  Age: 62 Year
  Sex: Female

DRUGS (18)
  1. BUMETANIDE. [Concomitant]
     Active Substance: BUMETANIDE
  2. FERROUS SULFATE [Concomitant]
     Active Substance: FERROUS SULFATE\FERROUS SULFATE, DRIED
  3. MODAFINIL. [Concomitant]
     Active Substance: MODAFINIL
  4. ALLOPURINOL. [Concomitant]
     Active Substance: ALLOPURINOL
  5. METOLAZONE. [Concomitant]
     Active Substance: METOLAZONE
  6. DOCUSATE [Concomitant]
     Active Substance: DOCUSATE
  7. INSULIN GLARGINE [Concomitant]
     Active Substance: INSULIN GLARGINE
  8. SILDENAFIL. [Concomitant]
     Active Substance: SILDENAFIL
  9. POTASSIUM CHLORIDE. [Concomitant]
     Active Substance: POTASSIUM CHLORIDE
  10. ALBUTEROL. [Concomitant]
     Active Substance: ALBUTEROL
  11. FLUTICASONE AND SALMETEROL? [Concomitant]
  12. INSULIN ASPART [Concomitant]
     Active Substance: INSULIN ASPART
  13. LOSARTAN. [Concomitant]
     Active Substance: LOSARTAN
  14. DIGOXIN. [Suspect]
     Active Substance: DIGOXIN
     Indication: CARDIAC FAILURE
     Route: 048
     Dates: end: 20150505
  15. ATORVASTATIN [Concomitant]
     Active Substance: ATORVASTATIN
  16. MAGNESIUM OXIDE. [Concomitant]
     Active Substance: MAGNESIUM OXIDE
  17. PREDNISONE. [Concomitant]
     Active Substance: PREDNISONE
  18. ACETAMINOPHEN. [Concomitant]
     Active Substance: ACETAMINOPHEN

REACTIONS (3)
  - Blood creatinine increased [None]
  - Cardioactive drug level increased [None]
  - Ventricular extrasystoles [None]

NARRATIVE: CASE EVENT DATE: 20150505
